FAERS Safety Report 9210040 (Version 1)
Quarter: 2012Q4

REPORT INFORMATION
  Report Type: 
  Country: DE (occurrence: DE)
  Receive Date: 20120903
  Receipt Date: 20120903
  Transmission Date: 20130627
  Serious: Yes (Other)
  Sender: FDA-Public Use
  Company Number: DE-UCBSA-063150

PATIENT
  Age: 18 Year
  Sex: Female

DRUGS (3)
  1. VIMPAT [Suspect]
     Indication: EPILEPSY
     Dosage: 100/200, DAILY DOSE: 300 MG
     Route: 048
  2. GRAVISTAT [Concomitant]
     Indication: CONTRACEPTION
     Dosage: Ethinylestradiol 0.05 mg, Levonorgesterol 0.125 mg
  3. APYDAN EXTENT [Concomitant]
     Indication: EPILEPSY
     Dosage: 1500/1200
     Route: 048

REACTIONS (1)
  - Metrorrhagia [Recovered/Resolved]
